FAERS Safety Report 7878592 (Version 5)
Quarter: 2013Q4

REPORT INFORMATION
  Report Type: Spontaneous
  Country: JP (occurrence: JP)
  Receive Date: 20110330
  Receipt Date: 20131223
  Transmission Date: 20140711
  Serious: Yes (Hospitalization)
  Sender: FDA-Public Use
  Company Number: PHHY2011JP21823

PATIENT
  Age: 75 Year
  Sex: Male
  Weight: 56 kg

DRUGS (4)
  1. TASIGNA [Suspect]
     Indication: CHRONIC MYELOID LEUKAEMIA
     Dosage: 800 MG, DAILY
     Route: 048
     Dates: start: 20091214, end: 20110920
  2. BIO THREE [Concomitant]
     Indication: PERIPHERAL ARTERIAL OCCLUSIVE DISEASE
     Dosage: 3 DF
     Route: 048
     Dates: start: 20091214
  3. ANPLAG [Concomitant]
     Indication: PERIPHERAL ARTERIAL OCCLUSIVE DISEASE
     Dosage: 300 MG
     Route: 048
     Dates: start: 20090722, end: 20100602
  4. URSO [Concomitant]
     Dosage: 300 MG
     Route: 048
     Dates: start: 20110105

REACTIONS (5)
  - Bile duct stone [Recovered/Resolved]
  - Cholecystitis [Recovered/Resolved]
  - Cholangitis acute [Recovered/Resolved]
  - Jaundice [Recovered/Resolved]
  - Hepatic function abnormal [Recovered/Resolved]
